FAERS Safety Report 5283706-4 (Version None)
Quarter: 2007Q2

REPORT INFORMATION
  Report Type: 
  Country: None (occurrence: None)
  Receive Date: 20070402
  Receipt Date: 20070312
  Transmission Date: 20071010
  Serious: Yes (Other)
  Sender: FDA-Public Use
  Company Number: US-SANOFI-SYNTHELABO-A03200702387

PATIENT
  Sex: Female

DRUGS (3)
  1. ZANAFLEX [Concomitant]
     Indication: DRUG USE FOR UNKNOWN INDICATION
     Dosage: UNK
     Route: 065
  2. AMBIEN [Suspect]
     Indication: INSOMNIA
     Dosage: 1 TO 2 AS NEEDED FOR 15 DAYS EACH MONTH
     Route: 048
     Dates: start: 20010101, end: 20050125
  3. ULTRACET [Concomitant]
     Indication: DRUG USE FOR UNKNOWN INDICATION
     Dosage: UNK
     Route: 065

REACTIONS (4)
  - AMNESIA [None]
  - CONFUSIONAL STATE [None]
  - OVERDOSE [None]
  - SOMNOLENCE [None]
